FAERS Safety Report 10023011 (Version 1)
Quarter: 2014Q1

REPORT INFORMATION
  Report Type: Spontaneous
  Country: US (occurrence: US)
  Receive Date: 20140319
  Receipt Date: 20140319
  Transmission Date: 20141002
  Serious: No
  Sender: FDA-Public Use
  Company Number: US-GILEAD-2014-0097131

PATIENT
  Sex: Female

DRUGS (5)
  1. LETAIRIS [Suspect]
     Indication: PRODUCT USED FOR UNKNOWN INDICATION
     Dosage: 10 MG, QD
     Route: 065
     Dates: start: 20131206
  2. WARFARIN [Concomitant]
  3. ADVAIR [Concomitant]
  4. MUCINEX [Concomitant]
  5. DYMISTA [Concomitant]

REACTIONS (1)
  - Sinus congestion [Unknown]
